FAERS Safety Report 7513278-2 (Version None)
Quarter: 2011Q2

REPORT INFORMATION
  Report Type: 
  Country: None (occurrence: None)
  Receive Date: 20110531
  Receipt Date: 20110518
  Transmission Date: 20111010
  Serious: Yes (Other)
  Sender: FDA-Public Use
  Company Number: JP-ASTRAZENECA-2011SE30094

PATIENT
  Age: 80 Year
  Sex: Female

DRUGS (2)
  1. RALOXIFENE HCL [Concomitant]
  2. OMEPRAZOLE [Suspect]

REACTIONS (1)
  - HYPOKALAEMIA [None]
